FAERS Safety Report 5108233-6 (Version None)
Quarter: 2006Q3

REPORT INFORMATION
  Report Type: 
  Country: None (occurrence: None)
  Receive Date: 20060914
  Receipt Date: 20060914
  Transmission Date: 20061208
  Serious: Yes (Hospitalization, Other)
  Sender: FDA-Public Use
  Company Number: None

PATIENT
  Age: 68 Year
  Sex: Female
  Weight: 51.5 kg

DRUGS (9)
  1. VELCADE [Suspect]
     Indication: MULTIPLE MYELOMA
     Dosage: 1.3 MG/M2 DAYS 1,4,8 AND 11 IV
     Route: 042
     Dates: start: 20060822, end: 20060901
  2. DOXORRUBICIN [Suspect]
     Indication: MULTIPLE MYELOMA
     Dosage: 15 MG/M2 DAYS 1 AND 8 IV
     Route: 042
     Dates: start: 20060822, end: 20060829
  3. LEXAPRO [Concomitant]
  4. DEXAMETHASONE TAB [Concomitant]
  5. FLUCONAZOLE [Concomitant]
  6. ACYCLOVIR [Concomitant]
  7. MORPHINE [Concomitant]
  8. RANITIDINE [Concomitant]
  9. COMPAZINE [Concomitant]

REACTIONS (11)
  - CONVULSION [None]
  - CYTOMEGALOVIRUS INFECTION [None]
  - DRUG TOXICITY [None]
  - ENCEPHALITIS VIRAL [None]
  - HAEMATEMESIS [None]
  - NAUSEA [None]
  - NERVOUS SYSTEM DISORDER [None]
  - NUCLEAR MAGNETIC RESONANCE IMAGING BRAIN ABNORMAL [None]
  - OESOPHAGEAL CANDIDIASIS [None]
  - OESOPHAGITIS [None]
  - POSTICTAL STATE [None]
